FAERS Safety Report 5160360-3 (Version None)
Quarter: 2006Q4

REPORT INFORMATION
  Report Type: 
  Country: None (occurrence: None)
  Receive Date: 20061120
  Receipt Date: 20061113
  Transmission Date: 20070319
  Serious: Yes (Death)
  Sender: FDA-Public Use
  Company Number: GXKR2006US07292

PATIENT
  Age: 2 Year
  Sex: Female

DRUGS (1)
  1. CLONIDINE [Suspect]
     Dosage: ORAL
     Route: 048

REACTIONS (7)
  - ACCIDENTAL OVERDOSE [None]
  - ACIDOSIS [None]
  - LABILE BLOOD PRESSURE [None]
  - POISONING [None]
  - PULMONARY OEDEMA [None]
  - RESPIRATORY DEPRESSION [None]
  - URINE OUTPUT DECREASED [None]
